FAERS Safety Report 5085678-4 (Version None)
Quarter: 2006Q3

REPORT INFORMATION
  Report Type: 
  Country: None (occurrence: None)
  Receive Date: 20060822
  Receipt Date: 20060807
  Transmission Date: 20061208
  Serious: Yes (Other)
  Sender: FDA-Public Use
  Company Number: US-ROCHE-458841

PATIENT
  Age: 14 Year
  Sex: Male
  Weight: 52.2 kg

DRUGS (3)
  1. ACCUTANE [Suspect]
     Indication: ACNE
     Route: 065
     Dates: start: 20050415, end: 20050715
  2. ADVAIR DISKUS 100/50 [Concomitant]
     Indication: ASTHMA
  3. SINGULAIR [Concomitant]
     Indication: ASTHMA

REACTIONS (1)
  - OBSESSIVE-COMPULSIVE DISORDER [None]
